FAERS Safety Report 23107711 (Version 1)
Quarter: 2023Q4

REPORT INFORMATION
  Report Type: Other
  Country: CN (occurrence: None)
  Receive Date: 20231026
  Receipt Date: 20231026
  Transmission Date: 20240109
  Serious: Yes (Other)
  Sender: FDA-Public Use
  Company Number: CN-ROCHE-3443418

PATIENT
  Age: 61 Year
  Sex: Male

DRUGS (11)
  1. MYCOPHENOLATE MOFETIL [Suspect]
     Active Substance: MYCOPHENOLATE MOFETIL
     Indication: Pemphigoid
     Route: 065
  2. METHYLPREDNISOLONE [Suspect]
     Active Substance: METHYLPREDNISOLONE
     Indication: Pemphigoid
     Route: 065
  3. RITUXIMAB [Suspect]
     Active Substance: RITUXIMAB
     Indication: Pemphigoid
     Route: 042
  4. DEXAMETHASONE [Concomitant]
     Active Substance: DEXAMETHASONE
     Route: 042
  5. BETAMETHASONE [Concomitant]
     Active Substance: BETAMETHASONE
  6. FUSIDIC ACID [Concomitant]
     Active Substance: FUSIDIC ACID
  7. MINOCYCLINE [Concomitant]
     Active Substance: MINOCYCLINE HYDROCHLORIDE
  8. METHOTREXATE [Concomitant]
     Active Substance: METHOTREXATE
  9. SULFAMETHOXAZOLE [Concomitant]
     Active Substance: SULFAMETHOXAZOLE
  10. DIPHENHYDRAMINE [Concomitant]
     Active Substance: DIPHENHYDRAMINE
  11. PREDNISONE [Concomitant]
     Active Substance: PREDNISONE

REACTIONS (6)
  - Sepsis [Unknown]
  - Fracture [Unknown]
  - Central obesity [Unknown]
  - Off label use [Unknown]
  - Cushingoid [Unknown]
  - Circumoral swelling [Recovered/Resolved]
